FAERS Safety Report 6963605-X (Version None)
Quarter: 2010Q3

REPORT INFORMATION
  Report Type: 
  Country: None (occurrence: None)
  Receive Date: 20100902
  Receipt Date: 20100820
  Transmission Date: 20110219
  Serious: Yes (Hospitalization)
  Sender: FDA-Public Use
  Company Number: US-ELI_LILLY_AND_COMPANY-US201008007154

PATIENT
  Sex: Female

DRUGS (9)
  1. FORTEO [Suspect]
     Indication: OSTEOPOROSIS
     Dosage: 20 UG, DAILY (1/D)
     Dates: start: 20080901
  2. CALCIUM [Concomitant]
  3. VITAMINE D3 B.O.N. [Concomitant]
  4. VITAMIN K2 [Concomitant]
  5. MAGNESIUM [Concomitant]
  6. MULTI-VITAMIN [Concomitant]
  7. COENZYME Q10 [Concomitant]
  8. ZINC [Concomitant]
  9. HAWTHORN [Concomitant]

REACTIONS (3)
  - BONE DENSITY DECREASED [None]
  - JOINT RANGE OF MOTION DECREASED [None]
  - UPPER LIMB FRACTURE [None]
